FAERS Safety Report 9466078 (Version 1)
Quarter: 2013Q3

REPORT INFORMATION
  Report Type: Spontaneous
  Country: GB (occurrence: GB)
  Receive Date: 20130820
  Receipt Date: 20130820
  Transmission Date: 20140515
  Serious: Yes (Other)
  Sender: FDA-Public Use
  Company Number: GB-ELI_LILLY_AND_COMPANY-GB201308003473

PATIENT
  Age: 13 Year
  Sex: Male
  Weight: 50.7 kg

DRUGS (3)
  1. STRATTERA [Suspect]
     Indication: ATTENTION DEFICIT/HYPERACTIVITY DISORDER
     Dosage: 25 MG, UNKNOWN
     Route: 048
     Dates: start: 20130607, end: 20130703
  2. STRATTERA [Suspect]
     Dosage: 35 MG, QD
     Route: 048
     Dates: start: 20130703, end: 20130722
  3. CONCERTA [Concomitant]
     Dosage: 27 MG, UNKNOWN
     Dates: end: 201307

REACTIONS (3)
  - Yellow skin [Unknown]
  - Blood alkaline phosphatase increased [Unknown]
  - Abdominal pain upper [Unknown]
